FAERS Safety Report 15453732 (Version 3)
Quarter: 2018Q4

REPORT INFORMATION
  Report Type: Report from Study
  Country: BE (occurrence: BE)
  Receive Date: 20181001
  Receipt Date: 20181221
  Transmission Date: 20190204
  Serious: Yes (Hospitalization)
  Sender: FDA-Public Use
  Company Number: BE-TAKEDA-2018TUS028190

PATIENT
  Sex: Female

DRUGS (4)
  1. COVERSYL                           /00790702/ [Suspect]
     Active Substance: PERINDOPRIL
     Indication: PRODUCT USED FOR UNKNOWN INDICATION
     Dosage: UNK
     Route: 065
  2. KREDEX [Concomitant]
     Active Substance: CARVEDILOL
     Dosage: UNK
  3. PANTOMED                           /00178901/ [Concomitant]
     Active Substance: DEXPANTHENOL
     Dosage: UNK
  4. VEDOLIZUMAB [Suspect]
     Active Substance: VEDOLIZUMAB
     Indication: PRODUCT USED FOR UNKNOWN INDICATION
     Dosage: UNK
     Route: 042
     Dates: start: 20170214

REACTIONS (2)
  - Gastroenteritis rotavirus [Recovered/Resolved]
  - Angioedema [Recovered/Resolved]

NARRATIVE: CASE EVENT DATE: 20180324
